FAERS Safety Report 14344114 (Version 4)
Quarter: 2018Q3

REPORT INFORMATION
  Report Type: Report from Study
  Country: None (occurrence: DE)
  Receive Date: 20180102
  Receipt Date: 20180716
  Transmission Date: 20181010
  Serious: Yes (Hospitalization)
  Sender: FDA-Public Use
  Company Number: DE-BAUSCH-BL-2017-035506

PATIENT
  Age: 64 Year
  Sex: Male
  Weight: 66 kg

DRUGS (28)
  1. PRIVIGEN [Concomitant]
     Active Substance: HUMAN IMMUNOGLOBULIN G
     Indication: PROPHYLAXIS
     Dosage: MONTHLY
     Route: 041
     Dates: start: 20171116
  2. AMPHO MORONAL [Concomitant]
     Active Substance: AMPHOTERICIN B
     Indication: PROPHYLAXIS
     Dosage: 30 MILLIGRAM
     Route: 048
     Dates: start: 20171116
  3. REVLIMID [Suspect]
     Active Substance: LENALIDOMIDE
     Route: 048
     Dates: start: 20180410, end: 20180430
  4. REVLIMID [Suspect]
     Active Substance: LENALIDOMIDE
     Route: 048
     Dates: start: 20180508, end: 20180528
  5. FORADIL [Concomitant]
     Active Substance: FORMOTEROL FUMARATE
     Indication: CHRONIC OBSTRUCTIVE PULMONARY DISEASE
     Dosage: 48 IU
     Route: 055
     Dates: start: 20171019
  6. DEXAMETHASONE. [Suspect]
     Active Substance: DEXAMETHASONE
     Route: 065
     Dates: start: 20171116, end: 20171116
  7. SALBUTAMOL?RATIOPHARM N [Concomitant]
     Indication: CHRONIC OBSTRUCTIVE PULMONARY DISEASE
     Dosage: 0.3 MILLIGRAM
     Route: 055
  8. DEXAMETHASONE. [Suspect]
     Active Substance: DEXAMETHASONE
     Route: 065
     Dates: start: 20170925, end: 20170925
  9. REVLIMID [Suspect]
     Active Substance: LENALIDOMIDE
     Route: 048
     Dates: start: 20171116, end: 20171124
  10. PANTOPRAZOL RATIOPHARM [Concomitant]
     Active Substance: PANTOPRAZOLE SODIUM
     Indication: PROPHYLAXIS
     Route: 048
     Dates: start: 20171019
  11. SIMVA HENNIG [Concomitant]
     Indication: MITRAL VALVE STENOSIS
     Route: 048
     Dates: start: 20171019
  12. SIMVA HENNIG [Concomitant]
     Indication: AORTIC VALVE STENOSIS
  13. BRILIQUE [Concomitant]
     Active Substance: TICAGRELOR
     Indication: TACHYCARDIA
     Route: 048
     Dates: start: 20171019
  14. DEXAMETHASONE. [Suspect]
     Active Substance: DEXAMETHASONE
     Indication: PLASMA CELL MYELOMA
     Route: 065
  15. REVLIMID [Suspect]
     Active Substance: LENALIDOMIDE
     Route: 048
     Dates: start: 20180116, end: 20180205
  16. REVLIMID [Suspect]
     Active Substance: LENALIDOMIDE
     Route: 048
     Dates: start: 20180213, end: 20180305
  17. REVLIMID [Suspect]
     Active Substance: LENALIDOMIDE
     Route: 048
     Dates: start: 20180313, end: 20180402
  18. JANUVIA [Concomitant]
     Active Substance: SITAGLIPTIN PHOSPHATE
     Indication: DIABETES MELLITUS
     Route: 048
     Dates: start: 20171122
  19. MIFLONIDE [Concomitant]
     Active Substance: BUDESONIDE
     Indication: CHRONIC OBSTRUCTIVE PULMONARY DISEASE
     Dosage: 200 IU
     Route: 055
     Dates: start: 20171019
  20. ACC [Concomitant]
     Active Substance: ACETYLCYSTEINE
     Indication: PROPHYLAXIS
     Route: 048
     Dates: start: 20171019
  21. DEXAMETHASONE. [Suspect]
     Active Substance: DEXAMETHASONE
     Dosage: WEEKLY;?5.7143 MILLIGRAM
     Route: 065
     Dates: start: 20180116, end: 20180529
  22. REVLIMID [Suspect]
     Active Substance: LENALIDOMIDE
     Indication: PLASMA CELL MYELOMA
     Route: 048
     Dates: start: 20170925, end: 20170930
  23. SPIRIVA [Concomitant]
     Active Substance: TIOTROPIUM BROMIDE MONOHYDRATE
     Indication: CHRONIC OBSTRUCTIVE PULMONARY DISEASE
     Route: 055
     Dates: start: 20170320
  24. ASA RATIOPHARM [Concomitant]
     Indication: PROPHYLAXIS
  25. IRENAT [Concomitant]
     Active Substance: SODIUM PERCHLORATE
     Indication: PROPHYLAXIS
     Dosage: 900 IU
     Route: 048
     Dates: start: 20171019, end: 20171116
  26. ATROVENT [Concomitant]
     Active Substance: IPRATROPIUM BROMIDE
     Indication: CHRONIC OBSTRUCTIVE PULMONARY DISEASE
     Dosage: 0.6 MILLIGRAM
     Route: 055
  27. RAMIPRIL BETA COMP [Concomitant]
     Indication: DIASTOLIC HYPERTENSION
     Route: 048
  28. ASA RATIOPHARM [Concomitant]
     Indication: TACHYCARDIA
     Route: 048
     Dates: start: 20170320

REACTIONS (6)
  - Abdominal pain upper [Recovered/Resolved]
  - Acute myocardial infarction [Recovered/Resolved]
  - Probiotic therapy [Recovered/Resolved]
  - Diarrhoea [Recovered/Resolved]
  - Extrasystoles [Recovered/Resolved]
  - Clostridium difficile infection [Recovered/Resolved]

NARRATIVE: CASE EVENT DATE: 20170930
